FAERS Safety Report 5517631-8 (Version None)
Quarter: 2007Q4

REPORT INFORMATION
  Report Type: 
  Country: None (occurrence: None)
  Receive Date: 20071114
  Receipt Date: 20071108
  Transmission Date: 20080405
  Serious: Yes (Hospitalization)
  Sender: FDA-Public Use
  Company Number: US-ROXANE LABORATORIES, INC-2007-BP-24222RO

PATIENT
  Age: 20 Year
  Sex: Male

DRUGS (10)
  1. MEGESTROL ACETATE [Suspect]
     Indication: CACHEXIA
  2. METHOTREXATE [Suspect]
     Indication: CHEMOTHERAPY
  3. FLUCONAZOLE [Suspect]
     Indication: CANDIDIASIS
  4. MORPHINE [Suspect]
  5. GEMCITABINE [Suspect]
     Indication: CHEMOTHERAPY
  6. DOXORUBICIN HCL [Suspect]
     Indication: CHEMOTHERAPY
  7. IFOSFAMIDE [Suspect]
     Indication: CHEMOTHERAPY
  8. TRIMETHOPRIM + SULFAMETHOXAZOLE [Suspect]
  9. BROAD-SPECTRUM ANTIBIOTICS [Concomitant]
     Indication: INFECTION
     Route: 042
  10. HYDROCORTISONE [Concomitant]

REACTIONS (7)
  - ADRENAL INSUFFICIENCY [None]
  - CANDIDIASIS [None]
  - HAEMOGLOBIN DECREASED [None]
  - HYPOALBUMINAEMIA [None]
  - HYPOGONADISM [None]
  - HYPONATRAEMIA [None]
  - PLATELET COUNT DECREASED [None]
